FAERS Safety Report 4378496-3 (Version None)
Quarter: 2004Q2

REPORT INFORMATION
  Report Type: 
  Country: None (occurrence: None)
  Receive Date: 20040609
  Receipt Date: 20040521
  Transmission Date: 20050107
  Serious: Yes (Hospitalization, Other)
  Sender: FDA-Public Use
  Company Number: USA040568205

PATIENT
  Age: 63 Year
  Sex: Female
  Weight: 93 kg

DRUGS (4)
  1. HUMULIN N [Suspect]
  2. HUMULIN U [Suspect]
     Dates: start: 19910101
  3. HUMULIN R [Suspect]
     Dates: start: 19910101
  4. COUMADIN [Concomitant]

REACTIONS (3)
  - AORTIC VALVE DISEASE [None]
  - CARDIAC FAILURE CONGESTIVE [None]
  - INTESTINAL HAEMORRHAGE [None]
